FAERS Safety Report 9215573 (Version 2)
Quarter: 2013Q2

REPORT INFORMATION
  Report Type: Spontaneous
  Country: GB (occurrence: GB)
  Receive Date: 20130408
  Receipt Date: 20130412
  Transmission Date: 20140414
  Serious: Yes (Other)
  Sender: FDA-Public Use
  Company Number: GB-MERCK-1304GBR000217

PATIENT
  Age: 64 Year
  Sex: Female

DRUGS (8)
  1. ZOCOR [Suspect]
     Indication: BLOOD CHOLESTEROL INCREASED
     Dosage: 20 MG, UNK
     Route: 048
     Dates: start: 2009
  2. ZOCOR [Suspect]
     Dosage: 40 MG, UNK
     Route: 048
     Dates: end: 201303
  3. AMLODIPINE [Suspect]
     Dosage: 10 MG, UNK
     Route: 048
  4. ANTIMICROBIAL (UNSPECIFIED) [Concomitant]
  5. COUGH, COLD, AND FLU THERAPIES (UNSPECIFIED) [Concomitant]
  6. ATORVASTATIN [Concomitant]
  7. DIURETIC (UNSPECIFIED) [Concomitant]
  8. RAMIPRIL [Concomitant]
     Dosage: UNK
     Dates: start: 2008

REACTIONS (17)
  - Blood urine present [Not Recovered/Not Resolved]
  - Nasopharyngitis [Not Recovered/Not Resolved]
  - Diarrhoea [Not Recovered/Not Resolved]
  - Gait disturbance [Not Recovered/Not Resolved]
  - Drug hypersensitivity [Not Recovered/Not Resolved]
  - Drug interaction [Unknown]
  - Hepatic steatosis [Not Recovered/Not Resolved]
  - Malaise [Not Recovered/Not Resolved]
  - Infection [Not Recovered/Not Resolved]
  - Hepatomegaly [Not Recovered/Not Resolved]
  - Paraesthesia [Not Recovered/Not Resolved]
  - Muscle spasms [Not Recovered/Not Resolved]
  - Erythema [Not Recovered/Not Resolved]
  - Speech disorder [Not Recovered/Not Resolved]
  - Local swelling [Not Recovered/Not Resolved]
  - Swollen tongue [Not Recovered/Not Resolved]
  - Weight increased [Not Recovered/Not Resolved]
